FAERS Safety Report 25925344 (Version 1)
Quarter: 2025Q4

REPORT INFORMATION
  Report Type: Spontaneous
  Country: US (occurrence: US)
  Receive Date: 20251015
  Receipt Date: 20251015
  Transmission Date: 20260118
  Serious: Yes (Other)
  Sender: INCYTE
  Company Number: US-EVENT-004611

PATIENT
  Age: 65 Year

DRUGS (1)
  1. JAKAFI [Suspect]
     Active Substance: RUXOLITINIB
     Indication: Platelet count increased
     Dosage: 10 MILLIGRAM, BID
     Route: 065

REACTIONS (2)
  - Gastrointestinal toxicity [Not Recovered/Not Resolved]
  - Off label use [Unknown]
